FAERS Safety Report 15904221 (Version 2)
Quarter: 2019Q1

REPORT INFORMATION
  Report Type: Report from Study
  Country: JP (occurrence: JP)
  Receive Date: 20190204
  Receipt Date: 20190208
  Transmission Date: 20190417
  Serious: Yes (Other)
  Sender: FDA-Public Use
  Company Number: JP-ROCHE-2254012

PATIENT

DRUGS (3)
  1. TRASTUZUMAB. [Suspect]
     Active Substance: TRASTUZUMAB
     Route: 042
  2. DOCETAXEL. [Suspect]
     Active Substance: DOCETAXEL
     Indication: SALIVARY GLAND CANCER
     Dosage: DAY 1
     Route: 042
  3. TRASTUZUMAB. [Suspect]
     Active Substance: TRASTUZUMAB
     Indication: SALIVARY GLAND CANCER
     Dosage: LOADING CASE
     Route: 042

REACTIONS (22)
  - Fatigue [Unknown]
  - Colitis [Unknown]
  - White blood cell count decreased [Unknown]
  - Oedema peripheral [Unknown]
  - Hyperglycaemia [Unknown]
  - Abdominal pain [Unknown]
  - Hyperuricaemia [Unknown]
  - Gastric haemorrhage [Unknown]
  - Neutrophil count decreased [Unknown]
  - Febrile neutropenia [Unknown]
  - Vomiting [Unknown]
  - Lymphocyte count decreased [Unknown]
  - Hypoalbuminaemia [Unknown]
  - Cardiac failure [Unknown]
  - Decreased appetite [Unknown]
  - Hyponatraemia [Unknown]
  - Nausea [Unknown]
  - Sepsis [Unknown]
  - Gastric ulcer [Unknown]
  - Anaemia [Unknown]
  - Pneumonitis [Unknown]
  - Lung infection [Unknown]
